FAERS Safety Report 14039101 (Version 3)
Quarter: 2018Q1

REPORT INFORMATION
  Report Type: Spontaneous
  Country: DE (occurrence: DE)
  Receive Date: 20171004
  Receipt Date: 20180205
  Transmission Date: 20180508
  Serious: No
  Sender: FDA-Public Use
  Company Number: DE-ASCEND THERAPEUTICS-2028746

PATIENT
  Age: 31 Year
  Sex: Female

DRUGS (7)
  1. VITAMIN D3DIETARY SUPPLEMEN DIETARY SUPPLEMENT [Concomitant]
     Active Substance: ALPHA-TOCOPHEROL\CHOLECALCIFEROL
     Route: 065
  2. SELEN (SELENIUM) [Concomitant]
     Route: 065
  3. ESTROGEL [Suspect]
     Active Substance: ESTRADIOL
     Indication: HORMONE REPLACEMENT THERAPY
     Route: 062
     Dates: start: 201706
  4. GYNOKADIN (ESTRADIOL HEMIHYDRATE) [Suspect]
     Active Substance: ESTRADIOL
     Route: 062
  5. GYNOKADIN (ESTRADIOL HEMIHYDRATE) [Suspect]
     Active Substance: ESTRADIOL
     Route: 062
  6. DEHYDROEPIANDROSTERONE (PRASTERONE) [Suspect]
     Active Substance: PRASTERONE
     Route: 065
  7. PROGESTAN (PROGESTERONE) [Suspect]
     Active Substance: PROGESTERONE
     Route: 048
     Dates: start: 201706

REACTIONS (2)
  - Oedema [Recovering/Resolving]
  - Fluid retention [Recovering/Resolving]

NARRATIVE: CASE EVENT DATE: 201706
